FAERS Safety Report 13041792 (Version 1)
Quarter: 2016Q4

REPORT INFORMATION
  Report Type: Spontaneous
  Country: US (occurrence: US)
  Receive Date: 20161219
  Receipt Date: 20161219
  Transmission Date: 20170207
  Serious: No
  Sender: FDA-Public Use
  Company Number: US-ENDO PHARMACEUTICALS INC.-2016-000147

PATIENT
  Sex: Male
  Weight: 79.45 kg

DRUGS (2)
  1. PERCOCET [Suspect]
     Active Substance: ACETAMINOPHEN\OXYCODONE HYDROCHLORIDE
     Indication: NEURALGIA
     Route: 065
  2. MORPHINE SULFATE ER [Suspect]
     Active Substance: MORPHINE SULFATE
     Indication: NEUROPATHY PERIPHERAL
     Route: 065

REACTIONS (1)
  - Drug ineffective [Unknown]
